FAERS Safety Report 6046122-3 (Version None)
Quarter: 2009Q1

REPORT INFORMATION
  Report Type: 
  Country: None (occurrence: None)
  Receive Date: 20090121
  Receipt Date: 20090121
  Transmission Date: 20090719
  Serious: No
  Sender: FDA-Public Use
  Company Number: None

PATIENT
  Sex: Female
  Weight: 86.82 kg

DRUGS (10)
  1. LEVAQUIN [Suspect]
     Dosage: 500MG TABLET 500 MG QD
     Route: 048
     Dates: start: 20090117, end: 20090119
  2. ALBUTEROL INHALER HFA [Concomitant]
  3. ATENOLOL [Concomitant]
  4. BENZONATATE [Concomitant]
  5. CELEBREX [Concomitant]
  6. CLARITIN [Concomitant]
  7. CYMBALTA [Concomitant]
  8. FLUTICASONE PROPIONATE [Concomitant]
  9. LIDOCAINE [Concomitant]
  10. VESICARE [Concomitant]

REACTIONS (1)
  - NAUSEA [None]
